FAERS Safety Report 7207495-9 (Version None)
Quarter: 2010Q4

REPORT INFORMATION
  Report Type: 
  Country: None (occurrence: None)
  Receive Date: 20101221
  Receipt Date: 20101207
  Transmission Date: 20110411
  Serious: Yes (Other)
  Sender: FDA-Public Use
  Company Number: 2010AP002612

PATIENT
  Age: 71 Year
  Sex: Male

DRUGS (15)
  1. ALENDRONATE SODIUM [Suspect]
     Indication: OSTEOPOROSIS
     Dosage: 70 MG QW; PO
     Route: 048
     Dates: start: 20040812, end: 20101129
  2. CALCIUM CARBONATE [Concomitant]
  3. COLECALCIFEROL [Concomitant]
  4. ACETYSALICYLIC ACID [Concomitant]
  5. ATORVASTATIN CALCIUM [Concomitant]
  6. FURUSEMIDE [Concomitant]
  7. PLANTAGO OVATA HUSK [Concomitant]
  8. GLYCERYL TRINITRATE [Concomitant]
  9. HYDROCORTISONE [Concomitant]
  10. CYANOCOBALAMIN [Concomitant]
  11. LISINOPRIL [Concomitant]
  12. MIRTAZAPINE [Concomitant]
  13. PARACETAMOL [Concomitant]
  14. RANITIDINE [Concomitant]
  15. MORPHINE SULFATE [Concomitant]

REACTIONS (2)
  - GINGIVAL ULCERATION [None]
  - OSTEONECROSIS OF JAW [None]
